FAERS Safety Report 21950879 (Version 1)
Quarter: 2023Q1

REPORT INFORMATION
  Report Type: Spontaneous
  Country: US (occurrence: None)
  Receive Date: 20230203
  Receipt Date: 20230203
  Transmission Date: 20230418
  Serious: Yes (Hospitalization)
  Sender: FDA-Public Use
  Company Number: None

PATIENT
  Sex: Female

DRUGS (3)
  1. AMBRISENTAN [Suspect]
     Active Substance: AMBRISENTAN
     Indication: Pulmonary arterial hypertension
     Dosage: 10MG DAILY ORAL?
     Route: 048
     Dates: start: 201611
  2. REMODULIN [Suspect]
     Active Substance: TREPROSTINIL
  3. DEVICE [Suspect]
     Active Substance: DEVICE

REACTIONS (1)
  - Headache [None]

NARRATIVE: CASE EVENT DATE: 20230131
